FAERS Safety Report 23087626 (Version 2)
Quarter: 2023Q4

REPORT INFORMATION
  Report Type: Spontaneous
  Country: IT (occurrence: None)
  Receive Date: 20231020
  Receipt Date: 20231024
  Transmission Date: 20240110
  Serious: Yes (Hospitalization)
  Sender: FDA-Public Use
  Company Number: IT-ROCHE-3437932

PATIENT
  Age: 76 Year
  Sex: Male

DRUGS (1)
  1. VABYSMO [Suspect]
     Active Substance: FARICIMAB\FARICIMAB-SVOA
     Indication: Diabetic retinal oedema
     Dosage: LEFT EYE: 7 JUL, 4 AUG, 1 SEP. RIGHT EYE: 21 JUL, 17 AUG, 22 SEP.
     Route: 050

REACTIONS (3)
  - Pyrexia [Unknown]
  - Kidney infection [Unknown]
  - Asthenia [Unknown]

NARRATIVE: CASE EVENT DATE: 20231006
